FAERS Safety Report 8652690 (Version 3)
Quarter: 2012Q4

REPORT INFORMATION
  Report Type: 
  Country: US (occurrence: US)
  Receive Date: 20120706
  Receipt Date: 20120921
  Transmission Date: 20130627
  Serious: Yes (Death, Hospitalization, Other)
  Sender: FDA-Public Use
  Company Number: US-GENZYME-FABR-1002607

PATIENT

DRUGS (20)
  1. FABRAZYME [Suspect]
     Indication: FABRY^S DISEASE
     Dosage: 1.0 mg/kg, UNK
     Route: 042
     Dates: start: 201205, end: 201208
  2. FABRAZYME [Suspect]
     Dosage: 1 mg/kg, UNK
     Route: 042
     Dates: start: 20061211, end: 201006
  3. REPLAGAL [Suspect]
     Indication: FABRY^S DISEASE
     Dosage: UNK
     Route: 065
     Dates: start: 201006, end: 201205
  4. LISINOPRIL [Concomitant]
     Indication: HYPOTENSION
     Dosage: 10 mg, qd
     Route: 065
     Dates: start: 201110
  5. ACTONEL [Concomitant]
     Indication: PRODUCT USED FOR UNKNOWN INDICATION
     Dosage: 35 mg, qd
     Route: 048
  6. ADVAIR [Concomitant]
     Indication: PRODUCT USED FOR UNKNOWN INDICATION
     Dosage: 250/50 mcg, bid
     Route: 065
  7. AMIODARONE [Concomitant]
     Indication: PRODUCT USED FOR UNKNOWN INDICATION
     Dosage: 1 tablet, qod
     Route: 065
  8. ASPIRIN [Concomitant]
     Indication: PRODUCT USED FOR UNKNOWN INDICATION
     Dosage: 81 mg, qd
     Route: 048
  9. BENADRYL [Concomitant]
     Indication: PRODUCT USED FOR UNKNOWN INDICATION
     Dosage: 25 mg, qd
     Route: 048
  10. CALCITROL [Concomitant]
     Indication: PRODUCT USED FOR UNKNOWN INDICATION
     Dosage: 0.25 mcg, qod
     Route: 065
  11. CALCIUM D [Concomitant]
     Indication: PRODUCT USED FOR UNKNOWN INDICATION
     Dosage: 1 Tablet, qd
     Route: 048
  12. COENZYME Q10 [Concomitant]
     Indication: PRODUCT USED FOR UNKNOWN INDICATION
     Dosage: 1 capsule, qd
     Route: 048
  13. FLUOXETINE [Concomitant]
     Indication: PRODUCT USED FOR UNKNOWN INDICATION
     Dosage: 20 mg, qd
     Route: 048
  14. ICAPS [Concomitant]
     Indication: PRODUCT USED FOR UNKNOWN INDICATION
     Dosage: 1 tablet, qd
     Route: 048
  15. OMEPRAZOLE [Concomitant]
     Indication: PRODUCT USED FOR UNKNOWN INDICATION
     Dosage: 40 mg, qd
     Route: 048
  16. SIMVASTATIN [Concomitant]
     Indication: PRODUCT USED FOR UNKNOWN INDICATION
     Dosage: 10 mg, qd
     Route: 048
  17. TRAMADOL [Concomitant]
     Indication: OSTEOARTHRITIS
     Dosage: 100 mg, tid
     Route: 048
  18. TRAMADOL [Concomitant]
     Indication: MYALGIA
  19. TYLENOL ARTHRITIS EXTENDED RELIEF [Concomitant]
     Indication: OSTEOARTHRITIS
     Dosage: 1000 mg, qd
     Route: 048
  20. VESICARE [Concomitant]
     Indication: PRODUCT USED FOR UNKNOWN INDICATION
     Dosage: 5 mg, qd
     Route: 048

REACTIONS (2)
  - Renal failure acute [Unknown]
  - Bladder cancer recurrent [Fatal]
